FAERS Safety Report 8471703-7 (Version None)
Quarter: 2012Q2

REPORT INFORMATION
  Report Type: 
  Country: None (occurrence: None)
  Receive Date: 20120627
  Receipt Date: 20120626
  Transmission Date: 20120825
  Serious: Yes (Death)
  Sender: FDA-Public Use
  Company Number: FR-GLAXOSMITHKLINE-B0498221A

PATIENT
  Age: 77 Year
  Sex: Female

DRUGS (8)
  1. PENTOXIFYLLINE [Suspect]
     Indication: VENTRICULAR TACHYARRHYTHMIA
     Dosage: 15MG PER DAY
     Route: 048
     Dates: start: 20070221, end: 20070829
  2. LANTUS [Concomitant]
     Route: 065
  3. POTASSIUM CHLORIDE [Concomitant]
     Route: 065
  4. NEXIUM [Concomitant]
     Route: 065
  5. AUGMENTIN '125' [Suspect]
     Indication: INFECTION
     Dosage: 1G THREE TIMES PER DAY
     Route: 048
     Dates: start: 20070828
  6. POLYETHYLENE GLYCOL [Concomitant]
     Route: 065
  7. AUGMENTIN '125' [Suspect]
     Indication: INFECTION
     Route: 042
     Dates: start: 20070826, end: 20070827
  8. LASIX [Concomitant]
     Route: 065

REACTIONS (4)
  - INTERNATIONAL NORMALISED RATIO INCREASED [None]
  - BREAST HAEMATOMA [None]
  - DRUG INTERACTION [None]
  - DEATH [None]
